FAERS Safety Report 12945927 (Version 2)
Quarter: 2017Q1

REPORT INFORMATION
  Report Type: Report from Study
  Country: US (occurrence: US)
  Receive Date: 20161115
  Receipt Date: 20170119
  Transmission Date: 20170428
  Serious: Yes (Hospitalization)
  Sender: FDA-Public Use
  Company Number: US-ACTELION-A-US2016-145366

PATIENT
  Age: 71 Year
  Sex: Female

DRUGS (2)
  1. UPTRAVI [Suspect]
     Active Substance: SELEXIPAG
     Indication: PULMONARY ARTERIAL HYPERTENSION
     Dosage: 1000 MCG, BID
     Route: 048
     Dates: start: 20160229, end: 20161030
  2. UPTRAVI [Suspect]
     Active Substance: SELEXIPAG
     Dosage: 600 MG, UNK
     Route: 048
     Dates: start: 20161217

REACTIONS (3)
  - Constipation [Unknown]
  - Acute respiratory failure [Unknown]
  - Small intestinal obstruction [Unknown]
